FAERS Safety Report 19670110 (Version 2)
Quarter: 2021Q3

REPORT INFORMATION
  Report Type: Spontaneous
  Country: US (occurrence: US)
  Receive Date: 20210806
  Receipt Date: 20210913
  Transmission Date: 20211014
  Serious: Yes (Other)
  Sender: FDA-Public Use
  Company Number: US-JNJFOC-20210764996

PATIENT
  Age: 55 Year
  Sex: Female
  Weight: 87.62 kg

DRUGS (4)
  1. REMICADE [Suspect]
     Active Substance: INFLIXIMAB
     Indication: COLITIS ULCERATIVE
     Route: 042
     Dates: start: 2018
  2. CALCIUM CARBONATE. [Concomitant]
     Active Substance: CALCIUM CARBONATE
     Route: 065
  3. VITAMIN D2 [Concomitant]
     Active Substance: ERGOCALCIFEROL
     Indication: PRODUCT USED FOR UNKNOWN INDICATION
     Route: 065
  4. IRON [Concomitant]
     Active Substance: IRON
     Indication: PRODUCT USED FOR UNKNOWN INDICATION
     Route: 065

REACTIONS (9)
  - Hypoaesthesia [Unknown]
  - Chills [Not Recovered/Not Resolved]
  - Therapeutic product effect decreased [Unknown]
  - Paraesthesia [Unknown]
  - Immunosuppressant drug level decreased [Unknown]
  - Colitis ulcerative [Not Recovered/Not Resolved]
  - Pyrexia [Not Recovered/Not Resolved]
  - Pollakiuria [Unknown]
  - Myalgia [Unknown]

NARRATIVE: CASE EVENT DATE: 202005
